FAERS Safety Report 19260162 (Version 1)
Quarter: 2021Q2

REPORT INFORMATION
  Report Type: Spontaneous
  Country: US (occurrence: US)
  Receive Date: 20210514
  Receipt Date: 20210514
  Transmission Date: 20210717
  Serious: Yes (Other)
  Sender: FDA-Public Use
  Company Number: US-TEVA-2021-US-1909522

PATIENT
  Age: 56 Year
  Sex: Female

DRUGS (1)
  1. COPAXONE [Suspect]
     Active Substance: GLATIRAMER ACETATE
     Indication: MULTIPLE SCLEROSIS
     Route: 065
     Dates: start: 2004, end: 2016

REACTIONS (4)
  - Skin disorder [Unknown]
  - Multiple sclerosis [Unknown]
  - Scar [Unknown]
  - Skin indentation [Unknown]
